FAERS Safety Report 15636560 (Version 2)
Quarter: 2018Q4

REPORT INFORMATION
  Report Type: Report from Study
  Country: US (occurrence: US)
  Receive Date: 20181120
  Receipt Date: 20181203
  Transmission Date: 20190205
  Serious: Yes (Hospitalization)
  Sender: FDA-Public Use
  Company Number: US-TEVA-2018-US-977554

PATIENT
  Age: 52 Year
  Sex: Female

DRUGS (2)
  1. POLYVINYL ALCOHOL [Concomitant]
     Active Substance: POLYVINYL ALCOHOL
     Route: 050
  2. DOXORUBICIN [Suspect]
     Active Substance: DOXORUBICIN
     Indication: HEPATOCELLULAR CARCINOMA
     Dosage: 50-150 MG
     Route: 050

REACTIONS (3)
  - Pancreatitis necrotising [Unknown]
  - Upper gastrointestinal haemorrhage [Unknown]
  - Hepatotoxicity [Unknown]
